FAERS Safety Report 15151769 (Version 1)
Quarter: 2018Q3

REPORT INFORMATION
  Report Type: Report from Study
  Country: None (occurrence: US)
  Receive Date: 20180716
  Receipt Date: 20180716
  Transmission Date: 20181010
  Serious: Yes (Death, Other)
  Sender: FDA-Public Use
  Company Number: US-ABBVIE-18K-163-2420244-00

PATIENT
  Age: 56 Year
  Sex: Male

DRUGS (1)
  1. HUMIRA [Suspect]
     Active Substance: ADALIMUMAB
     Indication: PRODUCT USED FOR UNKNOWN INDICATION
     Route: 058

REACTIONS (6)
  - Gastrointestinal tube insertion [Unknown]
  - Exposure via inhalation [Unknown]
  - Death [Fatal]
  - Intestinal operation [Unknown]
  - Gait inability [Unknown]
  - Colostomy [Unknown]

NARRATIVE: CASE EVENT DATE: 201608
